FAERS Safety Report 5938550-9 (Version None)
Quarter: 2008Q4

REPORT INFORMATION
  Report Type: 
  Country: None (occurrence: None)
  Receive Date: 20081103
  Receipt Date: 20081027
  Transmission Date: 20090506
  Serious: Yes (Other)
  Sender: FDA-Public Use
  Company Number: PHHY2008BR25971

PATIENT
  Age: 59 Year
  Sex: Female
  Weight: 61 kg

DRUGS (2)
  1. COMBIPATCH [Suspect]
     Indication: HORMONE THERAPY
     Dosage: 1 ADHESIVE EVERY 3-4 DAYS
     Route: 062
     Dates: start: 20050101, end: 20081001
  2. SYSTEN CONTI [Suspect]
     Dosage: UNK
     Dates: start: 20081001

REACTIONS (2)
  - DIZZINESS [None]
  - SYNCOPE [None]
